FAERS Safety Report 5042465-0 (Version None)
Quarter: 2006Q2

REPORT INFORMATION
  Report Type: 
  Country: None (occurrence: None)
  Receive Date: 20060627
  Receipt Date: 20060612
  Transmission Date: 20061013
  Serious: Yes (Other)
  Sender: FDA-Public Use
  Company Number: CA200606003195

PATIENT
  Sex: Female

DRUGS (13)
  1. FORTEO [Suspect]
     Indication: OSTEOPOROSIS
     Dosage: 20 UG, DAILY (1/D)
     Dates: start: 20041228
  2. GABAPENTIN [Concomitant]
  3. FUROSEMIDE [Concomitant]
  4. COZAAR [Concomitant]
  5. TIAZAC [Concomitant]
  6. LIPITOR [Concomitant]
  7. OSTOFORTE (ERGOCALCIFEROL) [Concomitant]
  8. VITAMIN D [Concomitant]
  9. CALCIUM GLUCONATE [Concomitant]
  10. SOFLAX (DOCUSATE SODIUM) [Concomitant]
  11. DICLOFENAC [Concomitant]
  12. NORTRIPTYLINE HCL [Concomitant]
  13. FORTEO [Concomitant]

REACTIONS (7)
  - DIARRHOEA [None]
  - EAR DISCOMFORT [None]
  - FATIGUE [None]
  - HAEMOGLOBIN DECREASED [None]
  - NASOPHARYNGITIS [None]
  - PHARYNGOLARYNGEAL PAIN [None]
  - THROMBOSIS [None]
